FAERS Safety Report 24828506 (Version 2)
Quarter: 2025Q1

REPORT INFORMATION
  Report Type: Spontaneous
  Country: US (occurrence: US)
  Receive Date: 20250110
  Receipt Date: 20250113
  Transmission Date: 20250408
  Serious: No
  Sender: VIIV
  Company Number: US-VIIV HEALTHCARE-US2025001558

PATIENT
  Age: 67 Year
  Sex: Female

DRUGS (1)
  1. DOVATO [Suspect]
     Active Substance: DOLUTEGRAVIR SODIUM\LAMIVUDINE
     Indication: HIV infection
     Dates: start: 202208

REACTIONS (3)
  - Nasopharyngitis [Unknown]
  - Product dose omission issue [Unknown]
  - Product use issue [Unknown]

NARRATIVE: CASE EVENT DATE: 20241225
